FAERS Safety Report 15419507 (Version 4)
Quarter: 2019Q1

REPORT INFORMATION
  Report Type: Spontaneous
  Country: US (occurrence: US)
  Receive Date: 20180924
  Receipt Date: 20190226
  Transmission Date: 20190417
  Serious: Yes (Death, Other)
  Sender: FDA-Public Use
  Company Number: US-BRISTOL-MYERS SQUIBB COMPANY-BMS-2018-085292

PATIENT
  Age: 89 Year
  Sex: Male
  Weight: 98.41 kg

DRUGS (1)
  1. ORENCIA [Suspect]
     Active Substance: ABATACEPT
     Indication: RHEUMATOID ARTHRITIS
     Dosage: 125 MG, QWK
     Route: 058
     Dates: start: 201807

REACTIONS (4)
  - Aortic rupture [Fatal]
  - Pneumonia [Not Recovered/Not Resolved]
  - Staphylococcal infection [Unknown]
  - Localised infection [Unknown]

NARRATIVE: CASE EVENT DATE: 20190131
